FAERS Safety Report 25895316 (Version 2)
Quarter: 2025Q4

REPORT INFORMATION
  Report Type: Spontaneous
  Country: EU (occurrence: EU)
  Receive Date: 20251008
  Receipt Date: 20251023
  Transmission Date: 20260117
  Serious: Yes (Hospitalization, Other)
  Sender: AUROBINDO
  Company Number: EU-ROCHE-10000392989

PATIENT
  Age: 36 Year
  Sex: Female
  Weight: 65 kg

DRUGS (13)
  1. DOXORUBICIN [Suspect]
     Active Substance: DOXORUBICIN
     Indication: Breast cancer
     Dosage: UNK
     Route: 042
     Dates: start: 20250716
  2. CARBOPLATIN [Suspect]
     Active Substance: CARBOPLATIN
     Indication: Breast cancer
     Dosage: UNK
     Route: 042
     Dates: start: 20250402
  3. ATEZOLIZUMAB [Suspect]
     Active Substance: ATEZOLIZUMAB
     Indication: Breast cancer
     Dosage: UNK
     Route: 042
     Dates: start: 20250402
  4. TIRAGOLUMAB [Suspect]
     Active Substance: TIRAGOLUMAB
     Indication: Breast cancer
     Dosage: UNK
     Route: 042
     Dates: start: 20250402
  5. CYCLOPHOSPHAMIDE [Suspect]
     Active Substance: CYCLOPHOSPHAMIDE
     Indication: Breast cancer
     Dosage: UNK
     Route: 042
     Dates: start: 20250716
  6. PACLITAXEL [Suspect]
     Active Substance: PACLITAXEL
     Indication: Breast cancer
     Dosage: UNK
     Route: 042
     Dates: start: 20250402
  7. HYDROCORTISONE [Concomitant]
     Active Substance: HYDROCORTISONE
     Indication: Product used for unknown indication
     Dosage: 10 MILLIGRAM
     Route: 065
  8. HYDROCORTISONE [Concomitant]
     Active Substance: HYDROCORTISONE
     Dosage: 20 MILLIGRAM
     Route: 065
  9. HYDROCORTISONE [Concomitant]
     Active Substance: HYDROCORTISONE
     Dosage: 30 MILLIGRAM
     Route: 048
     Dates: start: 20250715
  10. ACETAMINOPHEN [Concomitant]
     Active Substance: ACETAMINOPHEN
     Indication: Product used for unknown indication
     Dosage: UNK
     Route: 065
  11. PRIMPERAN [Concomitant]
     Active Substance: METOCLOPRAMIDE HYDROCHLORIDE
     Indication: Product used for unknown indication
     Dosage: 1 DOSAGE FORM
     Route: 065
     Dates: start: 20250428
  12. VITAMIN D [Concomitant]
     Active Substance: VITAMIN D NOS
     Indication: Product used for unknown indication
     Dosage: 1000 INTERNATIONAL UNIT, 1 MONTH
     Route: 065
     Dates: start: 20250517
  13. Akynzeo [Concomitant]
     Indication: Product used for unknown indication
     Dosage: 300/0.5 MG
     Route: 065
     Dates: start: 20250716

REACTIONS (4)
  - Adrenal insufficiency [Unknown]
  - Hypotension [Recovered/Resolved]
  - COVID-19 [Unknown]
  - Sepsis [Unknown]

NARRATIVE: CASE EVENT DATE: 20250918
